FAERS Safety Report 6097828-1 (Version None)
Quarter: 2009Q1

REPORT INFORMATION
  Report Type: 
  Country: None (occurrence: None)
  Receive Date: 20090227
  Receipt Date: 20090217
  Transmission Date: 20090719
  Serious: Yes (Hospitalization, Other)
  Sender: FDA-Public Use
  Company Number: US-ELI_LILLY_AND_COMPANY-US200902004565

PATIENT
  Age: 50 Year
  Sex: Female

DRUGS (1)
  1. GEMZAR [Suspect]
     Indication: SYNOVIAL SARCOMA METASTATIC
     Dosage: UNK, UNK

REACTIONS (8)
  - ASTHENIA [None]
  - CHOLECYSTITIS INFECTIVE [None]
  - DISEASE PROGRESSION [None]
  - MICROANGIOPATHIC HAEMOLYTIC ANAEMIA [None]
  - NEPHROPATHY TOXIC [None]
  - PETECHIAE [None]
  - RENAL FAILURE [None]
  - THROMBOCYTOPENIA [None]
